FAERS Safety Report 8923272 (Version 3)
Quarter: 2013Q1

REPORT INFORMATION
  Report Type: Report from Study
  Country: CA (occurrence: CA)
  Receive Date: 20121123
  Receipt Date: 20130123
  Transmission Date: 20140127
  Serious: Yes (Other)
  Sender: FDA-Public Use
  Company Number: CA-ROCHE-1115903

PATIENT
  Age: 55 None
  Sex: Male
  Weight: 99 kg

DRUGS (7)
  1. ACTEMRA [Suspect]
     Indication: RHEUMATOID ARTHRITIS
     Route: 042
     Dates: start: 20120611, end: 20121227
  2. PLAQUENIL [Concomitant]
     Route: 048
  3. FOLIC ACID [Concomitant]
  4. NAPROXEN [Concomitant]
  5. PREDNISONE [Concomitant]
     Route: 065
  6. METHOTREXATE [Concomitant]
  7. NAPROSYN [Concomitant]
     Route: 065

REACTIONS (5)
  - Therapeutic response decreased [Unknown]
  - Phlebitis [Not Recovered/Not Resolved]
  - Rheumatoid arthritis [Not Recovered/Not Resolved]
  - Rheumatoid nodule [Not Recovered/Not Resolved]
  - Drug ineffective [Unknown]
